FAERS Safety Report 13408429 (Version 1)
Quarter: 2017Q2

REPORT INFORMATION
  Report Type: Spontaneous
  Country: US (occurrence: US)
  Receive Date: 20170405
  Receipt Date: 20170405
  Transmission Date: 20170830
  Serious: No
  Sender: FDA-Public Use
  Company Number: None

PATIENT
  Age: 61 Year
  Sex: Female
  Weight: 81.45 kg

DRUGS (18)
  1. SYNTHROID [Concomitant]
     Active Substance: LEVOTHYROXINE SODIUM
  2. VITAMIN D [Concomitant]
     Active Substance: CHOLECALCIFEROL
  3. VAGIFEM [Concomitant]
     Active Substance: ESTRADIOL
  4. GABAPENTIN TABLETS, USP 600MG [Suspect]
     Active Substance: GABAPENTIN
     Indication: PUDENDAL CANAL SYNDROME
     Dosage: ?          QUANTITY:2 TABLET(S);?
     Route: 048
     Dates: start: 20161206, end: 20170405
  5. NEXIUM [Concomitant]
     Active Substance: ESOMEPRAZOLE MAGNESIUM
  6. ESTRACE [Concomitant]
     Active Substance: ESTRADIOL
  7. HUMERA PEN [Concomitant]
  8. AMITRIPTYLINE [Concomitant]
     Active Substance: AMITRIPTYLINE
  9. LIDOCAINE. [Concomitant]
     Active Substance: LIDOCAINE
  10. CELEBREX [Concomitant]
     Active Substance: CELECOXIB
  11. FEXOFENADINE [Concomitant]
     Active Substance: FEXOFENADINE\FEXOFENADINE HYDROCHLORIDE
  12. EVAMIST [Concomitant]
     Active Substance: ESTRADIOL
  13. CENTRUM SILVER [Concomitant]
     Active Substance: MINERALS\VITAMINS
  14. PROMETRIUM [Concomitant]
     Active Substance: PROGESTERONE
  15. MAGNESIUM [Concomitant]
     Active Substance: MAGNESIUM
  16. SIMVASTATIN. [Concomitant]
     Active Substance: SIMVASTATIN
  17. ELMIRON [Concomitant]
     Active Substance: PENTOSAN POLYSULFATE SODIUM
  18. GABAPENTINE [Concomitant]
     Active Substance: GABAPENTIN

REACTIONS (4)
  - Condition aggravated [None]
  - Product quality issue [None]
  - Product substitution issue [None]
  - Neuralgia [None]

NARRATIVE: CASE EVENT DATE: 20161206
